FAERS Safety Report 5097098-7 (Version None)
Quarter: 2006Q3

REPORT INFORMATION
  Report Type: 
  Country: None (occurrence: None)
  Receive Date: 20060906
  Receipt Date: 20060828
  Transmission Date: 20061208
  Serious: Yes (Hospitalization, Disabling, Congenital Anomaly)
  Sender: FDA-Public Use
  Company Number: US-JNJFOC-20060201805

PATIENT

DRUGS (20)
  1. REMICADE [Suspect]
  2. REMICADE [Suspect]
  3. REMICADE [Suspect]
  4. REMICADE [Suspect]
  5. REMICADE [Suspect]
  6. REMICADE [Suspect]
  7. REMICADE [Suspect]
  8. REMICADE [Suspect]
  9. REMICADE [Suspect]
  10. REMICADE [Suspect]
  11. REMICADE [Suspect]
  12. REMICADE [Suspect]
  13. REMICADE [Suspect]
  14. REMICADE [Suspect]
  15. REMICADE [Suspect]
  16. REMICADE [Suspect]
  17. REMICADE [Suspect]
     Indication: CROHN'S DISEASE
     Dosage: 7 INFUSIONS ON UNSPECIFIED DATES
  18. ACETAMINOPHEN [Concomitant]
     Indication: PREMEDICATION
  19. ANTIHISTAMINE [Concomitant]
     Indication: PREMEDICATION
  20. STEROIDS [Concomitant]
     Indication: PREMEDICATION

REACTIONS (2)
  - HAEMOPHILIA [None]
  - TRANSMISSION OF DRUG VIA SEMEN [None]
